FAERS Safety Report 8610316-0 (Version None)
Quarter: 2012Q3

REPORT INFORMATION
  Report Type: 
  Country: None (occurrence: None)
  Receive Date: 20120822
  Receipt Date: 20120816
  Transmission Date: 20120928
  Serious: Yes (Hospitalization)
  Sender: FDA-Public Use
  Company Number: PHHY2012JP071604

PATIENT
  Age: 38 Year
  Sex: Female

DRUGS (2)
  1. CARBAMAZEPINE [Suspect]
     Dosage: 30 G
     Route: 048
  2. MAPROTILINE HYDROCHLORIDE [Suspect]
     Indication: DEPRESSION
     Dosage: 2.1 G
     Route: 048

REACTIONS (5)
  - INTENTIONAL SELF-INJURY [None]
  - OVERDOSE [None]
  - ALTERED STATE OF CONSCIOUSNESS [None]
  - CARDIAC ARREST [None]
  - VENTRICULAR FIBRILLATION [None]
